FAERS Safety Report 14525418 (Version 3)
Quarter: 2018Q2

REPORT INFORMATION
  Report Type: Spontaneous
  Country: US (occurrence: US)
  Receive Date: 20180213
  Receipt Date: 20180419
  Transmission Date: 20180711
  Serious: Yes (Hospitalization, Other)
  Sender: FDA-Public Use
  Company Number: US-JNJFOC-20180216185

PATIENT
  Age: 79 Year
  Sex: Male

DRUGS (4)
  1. IMBRUVICA [Suspect]
     Active Substance: IBRUTINIB
     Indication: MANTLE CELL LYMPHOMA
     Route: 048
     Dates: start: 2014
  2. ATORVASTATIN CALCIUM. [Concomitant]
     Active Substance: ATORVASTATIN CALCIUM
  3. GLIPIZIDE. [Concomitant]
     Active Substance: GLIPIZIDE
  4. IMBRUVICA [Suspect]
     Active Substance: IBRUTINIB
     Indication: MANTLE CELL LYMPHOMA
     Route: 048
     Dates: start: 20150825

REACTIONS (4)
  - Hospitalisation [Unknown]
  - Disturbance in attention [Not Recovered/Not Resolved]
  - Heart valve stenosis [Not Recovered/Not Resolved]
  - Seizure [Unknown]

NARRATIVE: CASE EVENT DATE: 20171101
